FAERS Safety Report 25938971 (Version 5)
Quarter: 2025Q4

REPORT INFORMATION
  Report Type: Report from Study
  Country: US (occurrence: US)
  Receive Date: 20251019
  Receipt Date: 20251201
  Transmission Date: 20260118
  Serious: Yes (Hospitalization, Other)
  Sender: ABBVIE
  Company Number: US-ABBVIE-5755577

PATIENT
  Age: 73 Year
  Sex: Female

DRUGS (3)
  1. SKYRIZI [Suspect]
     Active Substance: RISANKIZUMAB-RZAA
     Indication: Psoriasis
     Route: 058
     Dates: start: 20200326, end: 202411
  2. SKYRIZI [Suspect]
     Active Substance: RISANKIZUMAB-RZAA
     Dosage: FORM STRENGTH: 150 MILLIGRAMS?SOLUTION FOR INJECTION IN PRE-FILLED PEN
     Route: 058
     Dates: start: 2020, end: 2020
  3. SKYRIZI [Suspect]
     Active Substance: RISANKIZUMAB-RZAA
     Dosage: LAST ADMIN DATE: 2025
     Route: 058
     Dates: start: 20250101

REACTIONS (12)
  - Cerebrovascular accident [Not Recovered/Not Resolved]
  - Skin hypertrophy [Unknown]
  - Hospitalisation [Unknown]
  - Scab [Unknown]
  - Stress [Unknown]
  - Psoriasis [Not Recovered/Not Resolved]
  - Injection site haemorrhage [Unknown]
  - Device issue [Not Recovered/Not Resolved]
  - Product administration interrupted [Unknown]
  - Illness [Unknown]
  - Alopecia [Not Recovered/Not Resolved]
  - Skin erosion [Unknown]

NARRATIVE: CASE EVENT DATE: 20240508
